FAERS Safety Report 20176287 (Version 1)
Quarter: 2021Q4

REPORT INFORMATION
  Report Type: Spontaneous
  Country: AT (occurrence: AT)
  Receive Date: 20211213
  Receipt Date: 20211213
  Transmission Date: 20220303
  Serious: Yes (Other)
  Sender: FDA-Public Use
  Company Number: AT-PFIZER INC-202101725416

PATIENT
  Age: 76 Year
  Sex: Male

DRUGS (6)
  1. EPLERENONE [Suspect]
     Active Substance: EPLERENONE
     Dosage: 50 MG, 1X/DAY
  2. TAFAMIDIS [Suspect]
     Active Substance: TAFAMIDIS
     Dosage: 61 MG, 1X/DAY
  3. EDOXABAN [Suspect]
     Active Substance: EDOXABAN
     Dosage: 30 MG, 1X/DAY
  4. LISINOPRIL [Suspect]
     Active Substance: LISINOPRIL
     Dosage: 2.5 MG, 1X/DAY
  5. FUROSEMIDE [Suspect]
     Active Substance: FUROSEMIDE
     Dosage: 40 MG, 1X/DAY
  6. BISOPROLOL FUMARATE [Suspect]
     Active Substance: BISOPROLOL FUMARATE
     Dosage: 2.5 MG, 1X/DAY

REACTIONS (2)
  - Cardiac failure [Unknown]
  - Cardiac amyloidosis [Unknown]

NARRATIVE: CASE EVENT DATE: 20210901
